FAERS Safety Report 24312438 (Version 1)
Quarter: 2024Q3

REPORT INFORMATION
  Report Type: Spontaneous
  Country: US (occurrence: None)
  Receive Date: 20240911
  Receipt Date: 20240911
  Transmission Date: 20241017
  Serious: Yes (Death, Life-Threatening, Hospitalization, Other)
  Sender: Public
  Company Number: None

PATIENT
  Age: 77 Year
  Sex: Male
  Weight: 72 kg

DRUGS (1)
  1. KEYTRUDA [Suspect]
     Active Substance: PEMBROLIZUMAB
     Indication: Renal cell carcinoma
     Dates: start: 20240313, end: 20240313

REACTIONS (5)
  - Pericardial effusion [None]
  - Infusion related reaction [None]
  - Dry mouth [None]
  - Mastication disorder [None]
  - Cardiac tamponade [None]

NARRATIVE: CASE EVENT DATE: 20240316
